FAERS Safety Report 9141660 (Version 2)
Quarter: 2013Q2

REPORT INFORMATION
  Report Type: Spontaneous
  Country: US (occurrence: US)
  Receive Date: 20130305
  Receipt Date: 20130506
  Transmission Date: 20140414
  Serious: No
  Sender: FDA-Public Use
  Company Number: US-AMGEN-USASP2013010133

PATIENT
  Age: 38 Year
  Sex: Female

DRUGS (1)
  1. ENBREL [Suspect]
     Indication: PSORIASIS
     Dosage: 50 MG, WEEKLY
     Dates: start: 2009, end: 2010

REACTIONS (6)
  - Pharyngeal oedema [Recovered/Resolved]
  - Weight decreased [Unknown]
  - Ear swelling [Recovered/Resolved]
  - Adverse event [Recovered/Resolved]
  - Influenza [Recovered/Resolved]
  - Psoriasis [Not Recovered/Not Resolved]
